FAERS Safety Report 23420812 (Version 2)
Quarter: 2025Q3

REPORT INFORMATION
  Report Type: Spontaneous
  Country: JP (occurrence: JP)
  Receive Date: 20240119
  Receipt Date: 20250905
  Transmission Date: 20251020
  Serious: Yes (Hospitalization, Other)
  Sender: RANBAXY
  Company Number: JP-SUN PHARMACEUTICAL INDUSTRIES LTD-2024R1-426431

PATIENT
  Age: 49 Year
  Sex: Female
  Weight: 55.4 kg

DRUGS (8)
  1. ILUMYA [Suspect]
     Active Substance: TILDRAKIZUMAB-ASMN
     Indication: Psoriasis
     Route: 058
     Dates: start: 20211112
  2. ILUMYA [Suspect]
     Active Substance: TILDRAKIZUMAB-ASMN
     Route: 058
     Dates: start: 20211210
  3. ILUMYA [Suspect]
     Active Substance: TILDRAKIZUMAB-ASMN
     Route: 058
     Dates: start: 20230818
  4. ILUMYA [Suspect]
     Active Substance: TILDRAKIZUMAB-ASMN
     Route: 058
     Dates: start: 20230915
  5. ILUMYA [Suspect]
     Active Substance: TILDRAKIZUMAB-ASMN
     Route: 058
     Dates: start: 20231208
  6. ILUMYA [Suspect]
     Active Substance: TILDRAKIZUMAB-ASMN
     Route: 058
     Dates: start: 20240308
  7. MARDUOX Ointment [Concomitant]
     Indication: Psoriasis
     Route: 062
  8. CLOBETASOL PROPIONATE [Concomitant]
     Active Substance: CLOBETASOL PROPIONATE
     Indication: Psoriasis
     Route: 062

REACTIONS (1)
  - Alcoholism [Recovering/Resolving]

NARRATIVE: CASE EVENT DATE: 20211201
